FAERS Safety Report 10109562 (Version 1)
Quarter: 2014Q2

REPORT INFORMATION
  Report Type: Spontaneous
  Country: TR (occurrence: None)
  Receive Date: 20140423
  Receipt Date: 20140423
  Transmission Date: 20141212
  Serious: Yes (Hospitalization)
  Sender: FDA-Public Use
  Company Number: IMP_07610_2014

PATIENT
  Age: 6 Year
  Sex: Male
  Weight: 20 kg

DRUGS (1)
  1. VALPROIC ACID (VALPROIC ACID) [Suspect]
     Indication: CONVULSION
     Dosage: 20 MG/KG/D

REACTIONS (22)
  - Pancreatitis acute [None]
  - Multi-organ failure [None]
  - Gastritis [None]
  - Splenomegaly [None]
  - Liver palpable subcostal [None]
  - Haematemesis [None]
  - Thrombocytopenia [None]
  - Coagulopathy [None]
  - Shock [None]
  - Sepsis [None]
  - Disseminated intravascular coagulation [None]
  - General physical health deterioration [None]
  - Anticonvulsant drug level above therapeutic [None]
  - Blood bilirubin increased [None]
  - Alanine aminotransferase increased [None]
  - Aspartate aminotransferase increased [None]
  - Gamma-glutamyltransferase increased [None]
  - Blood creatinine increased [None]
  - Blood urea increased [None]
  - Prothrombin time prolonged [None]
  - Activated partial thromboplastin time prolonged [None]
  - Fibrin D dimer increased [None]
